FAERS Safety Report 5729337-0 (Version None)
Quarter: 2008Q2

REPORT INFORMATION
  Report Type: 
  Country: None (occurrence: None)
  Receive Date: 20080506
  Receipt Date: 20080424
  Transmission Date: 20081010
  Serious: Yes (Hospitalization, Other)
  Sender: FDA-Public Use
  Company Number: US-PFIZER INC-2008036989

PATIENT
  Sex: Female
  Weight: 58.1 kg

DRUGS (4)
  1. LYRICA [Suspect]
     Indication: RADICULITIS
  2. LYRICA [Suspect]
     Indication: SPINAL COLUMN STENOSIS
  3. TALWIN [Concomitant]
  4. TRAZODONE HCL [Concomitant]

REACTIONS (3)
  - ANXIETY [None]
  - DYSPHORIA [None]
  - TREMOR [None]
